FAERS Safety Report 23327478 (Version 1)
Quarter: 2023Q4

REPORT INFORMATION
  Report Type: Spontaneous
  Country: FR (occurrence: FR)
  Receive Date: 20231221
  Receipt Date: 20231221
  Transmission Date: 20240109
  Serious: Yes (Hospitalization, Other)
  Sender: FDA-Public Use
  Company Number: FR-SANDOZ-SDZ2023FR017288

PATIENT
  Age: 59 Year
  Sex: Female

DRUGS (5)
  1. RISPERIDONE [Suspect]
     Active Substance: RISPERIDONE
     Indication: Product used for unknown indication
     Dosage: 2 TO 4 MG/DAY
     Route: 048
     Dates: start: 2021
  2. RISPERIDONE [Suspect]
     Active Substance: RISPERIDONE
     Dosage: 2 MG/ IN 1 DAY PRESCRIBED 6 MONTHS AGO
     Route: 065
  3. TRAMADOL [Suspect]
     Active Substance: TRAMADOL\TRAMADOL HYDROCHLORIDE
     Indication: Product used for unknown indication
     Dosage: 350 MILLIGRAM, DAILY, AT LEAST 350 MG/D
     Route: 048
  4. BROMAZEPAM [Suspect]
     Active Substance: BROMAZEPAM
     Indication: Product used for unknown indication
     Dosage: AT LEAST 3 LEXOMIL/DAY
     Route: 048
     Dates: start: 1997
  5. BROMAZEPAM [Suspect]
     Active Substance: BROMAZEPAM
     Dosage: 16 DOSAGE FORM IN 1 DAY // 16 DOSAGE FORM
     Route: 048

REACTIONS (3)
  - Incorrect product administration duration [Unknown]
  - Extrapyramidal disorder [Recovering/Resolving]
  - Drug use disorder [Not Recovered/Not Resolved]
